FAERS Safety Report 4426452-9 (Version None)
Quarter: 2004Q3

REPORT INFORMATION
  Report Type: 
  Country: None (occurrence: None)
  Receive Date: 20040815
  Receipt Date: 20040614
  Transmission Date: 20050211
  Serious: Yes (Life-Threatening, Hospitalization)
  Sender: FDA-Public Use
  Company Number: JP-MERCK-0407USA00939

PATIENT
  Age: 53 Year
  Sex: Female

DRUGS (3)
  1. NORVASC [Concomitant]
     Route: 048
     Dates: start: 20030821, end: 20040605
  2. CONIEL [Concomitant]
     Indication: HYPERTENSION
     Route: 048
     Dates: start: 20030801
  3. COZAAR [Suspect]
     Indication: HYPERTENSION
     Route: 048
     Dates: start: 20030801, end: 20040605

REACTIONS (3)
  - CHOKING SENSATION [None]
  - OESOPHAGEAL CARCINOMA [None]
  - PHARYNX DISCOMFORT [None]
